FAERS Safety Report 5644669-2 (Version None)
Quarter: 2008Q1

REPORT INFORMATION
  Report Type: 
  Country: None (occurrence: None)
  Receive Date: 20080229
  Receipt Date: 20070515
  Transmission Date: 20080703
  Serious: No
  Sender: FDA-Public Use
  Company Number: A0651424A

PATIENT
  Age: 53 Year
  Sex: Male

DRUGS (4)
  1. VALTREX [Suspect]
     Indication: GENITAL HERPES
     Dosage: 500MG PER DAY
     Route: 048
     Dates: start: 20061201
  2. FISH OIL [Concomitant]
  3. ASCORBIC ACID [Concomitant]
  4. TURMERIC [Concomitant]

REACTIONS (4)
  - FEELING ABNORMAL [None]
  - NASOPHARYNGITIS [None]
  - RHINORRHOEA [None]
  - UPPER RESPIRATORY TRACT INFECTION [None]
